FAERS Safety Report 8611293 (Version 4)
Quarter: 2012Q4

REPORT INFORMATION
  Report Type: Report from Study
  Country: NL (occurrence: NL)
  Receive Date: 20120612
  Receipt Date: 20121127
  Transmission Date: 20130627
  Serious: Yes (Hospitalization)
  Sender: FDA-Public Use
  Company Number: PHHO2012NL008733

PATIENT
  Age: 61 Year
  Sex: Male
  Weight: 109 kg

DRUGS (33)
  1. SUTENT [Suspect]
     Indication: METASTATIC RENAL CELL CARCINOMA
     Dosage: UNK
     Route: 048
     Dates: start: 20100625, end: 20100722
  2. SUTENT [Suspect]
     Dosage: 37.5 mg, QD
     Route: 048
     Dates: start: 20100723, end: 20120517
  3. SUTENT [Suspect]
     Dosage: 37.5 mg, QD
     Route: 048
     Dates: start: 20120519
  4. METFORMIN [Suspect]
     Dosage: 500 mg, TID
     Dates: start: 2008
  5. CRESTOR [Suspect]
     Dosage: UNK
     Dates: start: 20120404
  6. CRESTOR [Suspect]
     Dosage: 10 mg, QD
     Dates: start: 20120410
  7. GLICLAZIDE [Concomitant]
     Dosage: 30 mg, TID
     Dates: start: 2008
  8. GLICLAZIDE [Concomitant]
     Dosage: 30 mg, BID
     Dates: end: 20120403
  9. GLICLAZIDE [Concomitant]
     Dosage: 30 mg, TID
     Dates: start: 20120404, end: 20120515
  10. GLICLAZIDE [Concomitant]
     Dosage: 80 mg, TID
     Dates: start: 20120516
  11. SIMVASTATIN [Concomitant]
     Dosage: 40 mg, QD
     Dates: start: 200902
  12. SIMVASTATIN [Concomitant]
     Dosage: 40 mg, QD
     Dates: start: 20090404, end: 20120409
  13. AMLODIPINE [Concomitant]
     Dosage: 5 mg, QD
     Dates: start: 20100831, end: 20100914
  14. AMLODIPINE [Concomitant]
     Dosage: 5 mg, QD
     Dates: start: 20100920, end: 20100926
  15. AMLODIPINE [Concomitant]
     Dosage: 10 mg, QD
     Dates: start: 20100927
  16. HYDROCHLOROTHIAZIDE [Concomitant]
     Dosage: 12.5 mg, QD
     Dates: start: 20110429, end: 20110504
  17. LEVOTHYROXINE [Concomitant]
     Dosage: 100 ug, QD
     Dates: start: 20111104, end: 20111116
  18. EUTHYROX [Concomitant]
     Dosage: 100 ug, QD
     Dates: start: 20111117, end: 20111121
  19. EUTHYROX [Concomitant]
     Dosage: 150 ug, QD
     Dates: start: 20111122, end: 20111124
  20. EUTHYROX [Concomitant]
     Dosage: 100 ug, QD
     Dates: start: 20111125, end: 20120206
  21. EUTHYROX [Concomitant]
     Dosage: 125 ug, QD
     Dates: start: 20120207, end: 20120501
  22. EUTHYROX [Concomitant]
     Dosage: 150 ug, QD
     Dates: start: 20120502
  23. ALLOPURINOL [Concomitant]
     Dosage: 300 mg, QD
     Dates: start: 2006
  24. VICTOZA [Concomitant]
     Dosage: UNK
     Dates: start: 20120502
  25. PERSANTIN [Concomitant]
     Dosage: 200 mg, BID
     Dates: start: 200902
  26. CARBASALATE [Concomitant]
     Dosage: 100 mg, QD
     Dates: start: 200902
  27. CODEINE [Concomitant]
     Dosage: 10 mg, UNK
     Dates: start: 20110211
  28. CO-DIOVAN [Concomitant]
     Dosage: 80/12.5 mg
     Dates: start: 20110505
  29. PARACETAMOL [Concomitant]
     Dosage: 500-1000 mg
     Dates: start: 20110506
  30. ACTIQ [Concomitant]
     Dosage: 200 ug, UNK
     Dates: start: 20111124
  31. MOVICOLON [Concomitant]
     Dosage: UNK
     Dates: start: 20120223
  32. VISADRON [Concomitant]
  33. CETOMACROGOL (S) [Concomitant]
     Dosage: UNK
     Dates: start: 2009

REACTIONS (3)
  - Bacteraemia [Recovering/Resolving]
  - Hepatic function abnormal [None]
  - Diarrhoea [Unknown]
